FAERS Safety Report 13185313 (Version 1)
Quarter: 2017Q1

REPORT INFORMATION
  Report Type: Spontaneous
  Country: GB (occurrence: GB)
  Receive Date: 20170203
  Receipt Date: 20170203
  Transmission Date: 20170428
  Serious: Yes (Other)
  Sender: FDA-Public Use
  Company Number: GB-SA-2017SA014724

PATIENT

DRUGS (2)
  1. TOUJEO [Suspect]
     Active Substance: INSULIN GLARGINE
     Dosage: START DATE: 27TH OR 28TH JULY 2016 DOSE:10 UNIT(S)
     Route: 065
     Dates: start: 201607
  2. SOLOSTAR [Concomitant]
     Active Substance: DEVICE
     Dates: start: 201607

REACTIONS (5)
  - Mastitis [Unknown]
  - Product use issue [Unknown]
  - Radiation skin injury [Unknown]
  - Depressed mood [Unknown]
  - Arthralgia [Unknown]

NARRATIVE: CASE EVENT DATE: 2016
